FAERS Safety Report 8904750 (Version 2)
Quarter: 2013Q1

REPORT INFORMATION
  Report Type: Spontaneous
  Country: US (occurrence: US)
  Receive Date: 20121113
  Receipt Date: 20130130
  Transmission Date: 20140127
  Serious: Yes (Hospitalization)
  Sender: FDA-Public Use
  Company Number: US-INCYTE CORPORATION-2012IN002306

PATIENT
  Age: 65 Year
  Sex: Male
  Weight: 75.28 kg

DRUGS (1)
  1. JAKAFI [Suspect]
     Indication: MYELOFIBROSIS
     Dosage: 10 MG, BID
     Route: 048
     Dates: start: 20111220

REACTIONS (1)
  - Hospitalisation [Unknown]
